FAERS Safety Report 12557646 (Version 3)
Quarter: 2017Q3

REPORT INFORMATION
  Report Type: Spontaneous
  Country: DK (occurrence: DK)
  Receive Date: 20160714
  Receipt Date: 20170717
  Transmission Date: 20171127
  Serious: Yes (Congenital Anomaly, Other)
  Sender: FDA-Public Use
  Company Number: DK-JNJFOC-20160627033

PATIENT

DRUGS (2)
  1. INFLIXIMAB, RECOMBINANT [Suspect]
     Active Substance: INFLIXIMAB
     Indication: INFLAMMATORY BOWEL DISEASE
     Route: 064
  2. ADALIMUMAB [Suspect]
     Active Substance: ADALIMUMAB
     Indication: INFLAMMATORY BOWEL DISEASE
     Route: 064

REACTIONS (13)
  - Drug specific antibody present [Unknown]
  - Premature baby [Unknown]
  - Varicella [Unknown]
  - Cellulitis [Recovered/Resolved]
  - Upper respiratory tract infection [Recovered/Resolved]
  - Foetal exposure during pregnancy [Recovered/Resolved]
  - Hand-foot-and-mouth disease [Unknown]
  - Exanthema subitum [Unknown]
  - Congenital anomaly [Unknown]
  - Otitis media acute [Recovered/Resolved]
  - Pneumonia [Recovered/Resolved]
  - Low birth weight baby [Unknown]
  - Exposure during breast feeding [Unknown]
